FAERS Safety Report 24806660 (Version 2)
Quarter: 2025Q1

REPORT INFORMATION
  Report Type: Spontaneous
  Country: PT (occurrence: PT)
  Receive Date: 20250104
  Receipt Date: 20250109
  Transmission Date: 20250408
  Serious: Yes (Other)
  Sender: AUROBINDO
  Company Number: PT-HALEON-2215918

PATIENT
  Age: 52 Year
  Sex: Female

DRUGS (1)
  1. ACETAMINOPHEN [Suspect]
     Active Substance: ACETAMINOPHEN
     Indication: Pain
     Dosage: 10 GRAM, ONCE A DAY(HIGH DOSE)
     Route: 065

REACTIONS (11)
  - Cholestasis [Not Recovered/Not Resolved]
  - Hyperbilirubinaemia [Unknown]
  - Portal hypertension [Unknown]
  - Liver injury [Recovering/Resolving]
  - Hepatitis acute [Recovering/Resolving]
  - Diarrhoea [Unknown]
  - Pyrexia [Unknown]
  - Abdominal pain upper [Unknown]
  - Hepatic function abnormal [Recovering/Resolving]
  - Intentional overdose [Unknown]
  - Intentional product misuse [Unknown]
